FAERS Safety Report 5664018-3 (Version None)
Quarter: 2008Q1

REPORT INFORMATION
  Report Type: 
  Country: None (occurrence: None)
  Receive Date: 20080314
  Receipt Date: 20080303
  Transmission Date: 20080703
  Serious: Yes (Hospitalization)
  Sender: FDA-Public Use
  Company Number: JP-BAYER-200610486BYL

PATIENT
  Age: 85 Year
  Sex: Male
  Weight: 52 kg

DRUGS (30)
  1. AVELOX [Suspect]
     Indication: LOBAR PNEUMONIA
     Dosage: TOTAL DAILY DOSE: 400 MG  UNIT DOSE: 400 MG
     Route: 048
     Dates: start: 20060401, end: 20060407
  2. CIPROXAN IV [Suspect]
     Indication: LOBAR PNEUMONIA
     Dosage: TOTAL DAILY DOSE: 600 MG
     Route: 042
     Dates: start: 20060316, end: 20060322
  3. CIPROXAN IV [Suspect]
     Dosage: TOTAL DAILY DOSE: 600 MG
     Route: 042
     Dates: start: 20060328, end: 20060331
  4. TAXOTERE [Suspect]
     Indication: PROSTATE CANCER
     Route: 041
     Dates: start: 20060217, end: 20060217
  5. TAXOTERE [Suspect]
     Route: 041
     Dates: start: 20060309, end: 20060309
  6. PASIL [Suspect]
     Indication: LOBAR PNEUMONIA
     Dosage: TOTAL DAILY DOSE: 1000 MG  UNIT DOSE: 500 MG
     Route: 041
     Dates: start: 20060322, end: 20060327
  7. ESTRACYT [Concomitant]
     Indication: PROSTATE CANCER
     Route: 048
     Dates: start: 20060216, end: 20060220
  8. ESTRACYT [Concomitant]
     Route: 048
     Dates: start: 20060308, end: 20060312
  9. DECADRON [Concomitant]
     Indication: PROPHYLAXIS OF NAUSEA AND VOMITING
     Route: 048
     Dates: start: 20060216, end: 20060218
  10. DECADRON [Concomitant]
     Route: 048
     Dates: start: 20060308, end: 20060310
  11. SOLDEM [Concomitant]
     Route: 065
  12. PRIMPERAN INJ [Concomitant]
     Route: 065
  13. VEEN D [Concomitant]
     Route: 065
  14. TWINPAL [Concomitant]
     Route: 065
  15. LASIX [Concomitant]
     Route: 065
  16. MEROPEN KIT [Concomitant]
     Route: 065
  17. CARBOCAIN [Concomitant]
     Route: 065
  18. LEPETAN [Concomitant]
     Route: 065
  19. VITA-C [Concomitant]
     Route: 065
  20. CYANOCOBALAMIN [Concomitant]
     Route: 065
  21. METABOLIN [Concomitant]
     Route: 065
  22. PENTAZOCINE LACTATE [Concomitant]
     Route: 065
  23. ATARAX [Concomitant]
     Route: 065
  24. KYTRIL [Concomitant]
     Route: 065
  25. BUP-4 [Concomitant]
     Route: 048
  26. LENDORMIN [Concomitant]
     Route: 048
  27. PARIET [Concomitant]
     Route: 048
  28. GASMOTIN [Concomitant]
     Route: 048
  29. VITAMEDIN [Concomitant]
     Route: 048
  30. PEON [Concomitant]
     Route: 048

REACTIONS (1)
  - INTERSTITIAL LUNG DISEASE [None]
